FAERS Safety Report 10375234 (Version 1)
Quarter: 2014Q1

REPORT INFORMATION
  Report Type: Spontaneous
  Country: US (occurrence: None)
  Receive Date: 20140306
  Receipt Date: 20140306
  Transmission Date: 20141002
  Serious: Yes (Other)
  Sender: FDA-Public Use
  Company Number: 163-21880-12120427

PATIENT
  Age: 80 Year
  Sex: Male

DRUGS (3)
  1. REVLIMID (LENALIDOMIDE) (10 MILLIGRAM CAPSULES) [Suspect]
     Indication: MYELODYSPLASTIC SYNDROME
     Route: 048
     Dates: start: 201209
  2. PREVACID (LANSOPRAZOLE) [Concomitant]
  3. ASA (ACETYLSALICYLIC ACID) [Concomitant]

REACTIONS (3)
  - Neutropenia [None]
  - Leukopenia [None]
  - Rash [None]
